FAERS Safety Report 16260152 (Version 1)
Quarter: 2019Q2

REPORT INFORMATION
  Report Type: Spontaneous
  Country: DK (occurrence: DK)
  Receive Date: 20190501
  Receipt Date: 20190501
  Transmission Date: 20190711
  Serious: Yes (Death, Hospitalization)
  Sender: FDA-Public Use
  Company Number: DK-MYLANLABS-2019M1041286

PATIENT
  Age: 87 Year
  Sex: Female

DRUGS (3)
  1. CALCIUM CARBONATE. [Suspect]
     Active Substance: CALCIUM CARBONATE
     Indication: OSTEOPOROSIS PROPHYLAXIS
     Dosage: 400 MILLIGRAM
     Route: 065
  2. MAGNESIUM OXIDE. [Suspect]
     Active Substance: MAGNESIUM OXIDE
     Indication: DYSPEPSIA
     Dosage: 500MG TWO TABLETS ONCE DAILY
     Route: 065
  3. VITAMIN D                          /07503901/ [Suspect]
     Active Substance: VITAMIN D NOS
     Indication: OSTEOPOROSIS PROPHYLAXIS
     Dosage: 19 MICROGRAM
     Route: 065

REACTIONS (2)
  - Pulmonary oedema [Fatal]
  - Milk-alkali syndrome [Fatal]
